FAERS Safety Report 17891838 (Version 3)
Quarter: 2023Q4

REPORT INFORMATION
  Report Type: Spontaneous
  Country: ES (occurrence: ES)
  Receive Date: 20200612
  Receipt Date: 20231106
  Transmission Date: 20240110
  Serious: Yes (Life-Threatening, Other)
  Sender: FDA-Public Use
  Company Number: None

PATIENT

DRUGS (10)
  1. MUPIROCIN [Suspect]
     Active Substance: MUPIROCIN
     Indication: Actinic keratosis
     Dosage: UNK
     Route: 061
     Dates: start: 20181231
  2. MYCOPHENOLATE MOFETIL [Suspect]
     Active Substance: MYCOPHENOLATE MOFETIL
     Indication: Heart transplant
     Dosage: 500 MG, BID
     Route: 048
     Dates: start: 20170419
  3. TACROLIMUS [Suspect]
     Active Substance: TACROLIMUS
     Indication: Heart transplant
     Dosage: 2 MG, QD, 60 HARD CAPSULES
     Route: 048
     Dates: start: 20170419
  4. PICATO [Suspect]
     Active Substance: INGENOL MEBUTATE
     Indication: Actinic keratosis
     Dosage: 3 SINGLE-DOSE TUBES OF 0.47 G
     Route: 061
     Dates: start: 20181231, end: 20190102
  5. PICATO [Suspect]
     Active Substance: INGENOL MEBUTATE
     Dosage: 3 SINGLE-DOSE TUBES OF 0.47 G
     Route: 061
     Dates: start: 20190403, end: 20190405
  6. PREDNISONE [Concomitant]
     Active Substance: PREDNISONE
     Indication: Heart transplant
     Dosage: 2.5 MG, QD
     Route: 048
     Dates: start: 20170419
  7. FOLIC ACID [Concomitant]
     Active Substance: FOLIC ACID
     Indication: Heart transplant
     Dosage: 5 MG, QD
     Route: 048
     Dates: start: 20170419
  8. ACETAMINOPHEN [Concomitant]
     Active Substance: ACETAMINOPHEN
     Indication: Product used for unknown indication
     Dosage: 1000 MG, TID
     Route: 048
     Dates: start: 20170419
  9. OMEPRAZOLE [Concomitant]
     Active Substance: OMEPRAZOLE
     Indication: Product used for unknown indication
     Dosage: 20 MG, QD
     Route: 048
     Dates: start: 20170419
  10. PRAVASTATIN [Concomitant]
     Active Substance: PRAVASTATIN
     Indication: Dyslipidaemia
     Dosage: 20 MG, QD
     Route: 048
     Dates: start: 20170419

REACTIONS (1)
  - Squamous cell carcinoma of skin [Not Recovered/Not Resolved]

NARRATIVE: CASE EVENT DATE: 20190601
